FAERS Safety Report 6023812-X (Version None)
Quarter: 2008Q4

REPORT INFORMATION
  Report Type: 
  Country: None (occurrence: None)
  Receive Date: 20081230
  Receipt Date: 20081215
  Transmission Date: 20090506
  Serious: Yes (Death)
  Sender: FDA-Public Use
  Company Number: US-PFIZER INC-2008153447

PATIENT
  Age: 42 Year
  Sex: Female

DRUGS (7)
  1. SERTRALINE HCL [Suspect]
     Route: 048
  2. ALPRAZOLAM [Suspect]
     Route: 048
  3. LISINOPRIL [Suspect]
     Route: 048
  4. TRAMADOL HCL [Suspect]
     Route: 048
  5. ACETAMINOPHEN [Suspect]
     Route: 048
  6. AMITRIPTYLINE [Suspect]
     Route: 048
  7. ALL OTHER THERAPEUTIC PRODUCTS [Suspect]
     Route: 048

REACTIONS (2)
  - COMPLETED SUICIDE [None]
  - INTENTIONAL DRUG MISUSE [None]
